FAERS Safety Report 21975924 (Version 1)
Quarter: 2023Q1

REPORT INFORMATION
  Report Type: Report from Study
  Country: NL (occurrence: NL)
  Receive Date: 20230210
  Receipt Date: 20230210
  Transmission Date: 20230418
  Serious: Yes (Hospitalization)
  Sender: FDA-Public Use
  Company Number: NL-JNJFOC-20221214434

PATIENT
  Sex: Female

DRUGS (7)
  1. DARATUMUMAB [Suspect]
     Active Substance: DARATUMUMAB
     Indication: Primary amyloidosis
     Route: 058
     Dates: start: 20210203, end: 20221107
  2. ACENOCOUMAROL [Concomitant]
     Active Substance: ACENOCOUMAROL
     Indication: Prophylaxis
     Dates: start: 20201117
  3. MAGNESIUM HYDROXIDE [Concomitant]
     Active Substance: MAGNESIUM HYDROXIDE
     Indication: Prophylaxis
     Dates: start: 20210719
  4. BUMETANIDE [Concomitant]
     Active Substance: BUMETANIDE
     Dates: start: 20220131
  5. PREGABALIN [Concomitant]
     Active Substance: PREGABALIN
     Dates: start: 20220225
  6. SPIRONOLACTONE [Concomitant]
     Active Substance: SPIRONOLACTONE
     Dates: start: 20220425
  7. TRAMADOL [Concomitant]
     Active Substance: TRAMADOL
     Dates: start: 20220523

REACTIONS (1)
  - Cellulitis [Recovered/Resolved]

NARRATIVE: CASE EVENT DATE: 20221202
